FAERS Safety Report 12153406 (Version 1)
Quarter: 2016Q1

REPORT INFORMATION
  Report Type: Report from Study
  Country: US (occurrence: US)
  Receive Date: 20160306
  Receipt Date: 20160306
  Transmission Date: 20160526
  Serious: Yes (Other)
  Sender: FDA-Public Use
  Company Number: US-AMGEN-USASL2016026932

PATIENT
  Age: 59 Year
  Sex: Female

DRUGS (1)
  1. ENBREL [Suspect]
     Active Substance: ETANERCEPT
     Indication: PRODUCT USED FOR UNKNOWN INDICATION
     Dosage: UNK
     Route: 065
     Dates: start: 201204

REACTIONS (7)
  - Dizziness [Unknown]
  - Local swelling [Unknown]
  - Road traffic accident [Unknown]
  - Helicobacter infection [Not Recovered/Not Resolved]
  - Diarrhoea [Unknown]
  - Neck pain [Unknown]
  - Tinnitus [Unknown]

NARRATIVE: CASE EVENT DATE: 2012
